FAERS Safety Report 9203700 (Version 2)
Quarter: 2013Q2

REPORT INFORMATION
  Report Type: Spontaneous
  Country: FR (occurrence: FR)
  Receive Date: 20130402
  Receipt Date: 20130425
  Transmission Date: 20140414
  Serious: Yes (Other)
  Sender: FDA-Public Use
  Company Number: PHHY2013FR031117

PATIENT
  Sex: Female

DRUGS (3)
  1. SANDOSTATINE LAR [Suspect]
     Indication: ACROMEGALY
     Dosage: 30 MG, MONTHLY
     Route: 030
  2. LIPANTHYL [Concomitant]
     Dosage: UNK UKN, UNK
  3. LEVOTHYROX [Concomitant]
     Dosage: 75 MG, UNK
     Dates: start: 2011

REACTIONS (2)
  - Lymphoma [Unknown]
  - Needle issue [Unknown]
